FAERS Safety Report 10269867 (Version 1)
Quarter: 2014Q2

REPORT INFORMATION
  Report Type: Spontaneous
  Country: GB (occurrence: None)
  Receive Date: 20140625
  Receipt Date: 20140625
  Transmission Date: 20141212
  Serious: Yes (Hospitalization, Other)
  Sender: FDA-Public Use
  Company Number: GB-H14001-14-00070

PATIENT
  Age: 36 Year
  Sex: Female

DRUGS (9)
  1. PHENYTOIN [Suspect]
     Indication: EPILEPSY
  2. OXCARBAZEPINE [Suspect]
     Indication: EPILEPSY
  3. TOPIRAMATE [Suspect]
     Indication: EPILEPSY
     Route: 048
  4. LACOSAMIDE [Suspect]
     Indication: EPILEPSY
  5. PHENOBARBITAL [Concomitant]
  6. LAMOTRIGINE [Concomitant]
  7. GABAPENTIN [Concomitant]
  8. VIGABATRIN [Concomitant]
  9. CARBAMAZEPINE [Concomitant]

REACTIONS (5)
  - Convulsion [None]
  - Diplopia [None]
  - Balance disorder [None]
  - Neurotoxicity [None]
  - Drug interaction [None]
